FAERS Safety Report 5016569-2 (Version None)
Quarter: 2006Q2

REPORT INFORMATION
  Report Type: 
  Country: None (occurrence: None)
  Receive Date: 20060602
  Receipt Date: 20060412
  Transmission Date: 20061013
  Serious: Yes (Hospitalization)
  Sender: FDA-Public Use
  Company Number: JP-BRISTOL-MYERS SQUIBB COMPANY-13345160

PATIENT
  Age: 63 Year
  Sex: Male

DRUGS (1)
  1. KENACORT-A OPHTHALMIC OINTMENT [Suspect]
     Indication: MACULAR OEDEMA
     Route: 031
     Dates: start: 20041206, end: 20041206

REACTIONS (2)
  - CYTOMEGALOVIRUS CHORIORETINITIS [None]
  - GLAUCOMA [None]
